FAERS Safety Report 10519034 (Version 1)
Quarter: 2014Q4

REPORT INFORMATION
  Report Type: Spontaneous
  Country: FR (occurrence: FR)
  Receive Date: 20141015
  Receipt Date: 20141015
  Transmission Date: 20150528
  Serious: Yes (Life-Threatening)
  Sender: FDA-Public Use
  Company Number: FR-ASTRAZENECA-2014SE75623

PATIENT
  Age: 15763 Day
  Sex: Female

DRUGS (5)
  1. CELOCURINE [Suspect]
     Active Substance: SUCCINYLCHOLINE CHLORIDE
     Indication: GENERAL ANAESTHESIA
     Route: 042
     Dates: start: 20140917, end: 20140917
  2. AUGMENTIN [Suspect]
     Active Substance: AMOXICILLIN\CLAVULANATE POTASSIUM
     Dosage: 2 GRAMS ONCE
     Route: 042
     Dates: start: 20140917, end: 20140917
  3. DIPRIVAN [Suspect]
     Active Substance: PROPOFOL
     Indication: GENERAL ANAESTHESIA
     Route: 042
     Dates: start: 20140917, end: 20140917
  4. SYNTOCINON [Suspect]
     Active Substance: OXYTOCIN
     Route: 042
     Dates: start: 20140917, end: 20140917
  5. RANIPLEX [Suspect]
     Active Substance: RANITIDINE HYDROCHLORIDE
     Route: 048
     Dates: start: 20140917, end: 20140917

REACTIONS (4)
  - Hypotension [Recovered/Resolved]
  - Anaphylactic shock [Unknown]
  - Hypoxia [Recovered/Resolved]
  - Bradycardia [Recovered/Resolved]

NARRATIVE: CASE EVENT DATE: 20140917
